FAERS Safety Report 9848533 (Version 1)
Quarter: 2013Q4

REPORT INFORMATION
  Report Type: Spontaneous
  Country: US (occurrence: None)
  Receive Date: 20131226
  Receipt Date: 20131226
  Transmission Date: 20140711
  Serious: Yes (Hospitalization)
  Sender: FDA-Public Use
  Company Number: PHEH2012US016815

PATIENT
  Sex: Female

DRUGS (3)
  1. VALTURNA [Suspect]
  2. TOPROL (METOPROLOL) [Concomitant]
  3. METFORMIN (METFORMIN) [Concomitant]

REACTIONS (1)
  - Diarrhoea [None]
